FAERS Safety Report 5620996-X (Version None)
Quarter: 2008Q1

REPORT INFORMATION
  Report Type: 
  Country: None (occurrence: None)
  Receive Date: 20080208
  Receipt Date: 20080130
  Transmission Date: 20080703
  Serious: Yes (Death)
  Sender: FDA-Public Use
  Company Number: US-ABBOTT-08P-163-0436605-00

PATIENT
  Age: 65 Year
  Sex: Female

DRUGS (10)
  1. HYDROCHLOROTHIAZIDE [Suspect]
     Indication: DRUG USE FOR UNKNOWN INDICATION
     Route: 048
  2. AMITRIPTYLINE HCL [Suspect]
     Indication: DRUG USE FOR UNKNOWN INDICATION
     Route: 048
  3. CALCIUM ANTAGONIST [Suspect]
     Indication: DRUG USE FOR UNKNOWN INDICATION
     Route: 048
  4. BUSPIRONE HCL [Suspect]
     Indication: DRUG USE FOR UNKNOWN INDICATION
     Route: 048
  5. OXYCODONE HCL [Suspect]
     Indication: DRUG USE FOR UNKNOWN INDICATION
     Route: 048
  6. ATYPICAL ANTIPSYCHOTIC [Suspect]
     Indication: DRUG USE FOR UNKNOWN INDICATION
     Route: 048
  7. COX-2 INHIBITOR [Suspect]
     Indication: DRUG USE FOR UNKNOWN INDICATION
     Route: 048
  8. ANTIHYPERLIPIDEMIC [Suspect]
     Indication: DRUG USE FOR UNKNOWN INDICATION
     Route: 048
  9. ANTIHISTAMINES [Suspect]
     Indication: DRUG USE FOR UNKNOWN INDICATION
     Route: 048
  10. CLONAZEPAM [Suspect]
     Indication: DRUG USE FOR UNKNOWN INDICATION
     Route: 048

REACTIONS (1)
  - COMPLETED SUICIDE [None]
